FAERS Safety Report 8811854 (Version 1)
Quarter: 2012Q4

REPORT INFORMATION
  Report Type: 
  Country: CN (occurrence: CN)
  Receive Date: 20120927
  Receipt Date: 20120927
  Transmission Date: 20130627
  Serious: Yes (Other)
  Sender: FDA-Public Use
  Company Number: CN-GLAXOSMITHKLINE-B0833345A

PATIENT
  Sex: Male
  Weight: 50 kg

DRUGS (1)
  1. CEFUROXIME SODIUM [Suspect]
     Indication: INFECTION
     Dosage: 1.5G Twice per day
     Route: 042
     Dates: start: 20110811, end: 20110811

REACTIONS (5)
  - Amaurosis [Recovering/Resolving]
  - Dizziness [Recovering/Resolving]
  - Chills [Recovering/Resolving]
  - Syncope [Recovering/Resolving]
  - Periorbital contusion [Recovering/Resolving]
